FAERS Safety Report 5279589-9 (Version None)
Quarter: 2007Q1

REPORT INFORMATION
  Report Type: 
  Country: None (occurrence: None)
  Receive Date: 20070323
  Receipt Date: 20070314
  Transmission Date: 20070707
  Serious: Yes (Hospitalization)
  Sender: FDA-Public Use
  Company Number: 2007311461

PATIENT
  Age: 20 Month
  Sex: Female

DRUGS (1)
  1. SUDAFED S.A. [Suspect]
     Dosage: ONE TABLET ONCE, ORAL
     Route: 048
     Dates: start: 20070312, end: 20070312

REACTIONS (3)
  - ACCIDENTAL DRUG INTAKE BY CHILD [None]
  - CROUP INFECTIOUS [None]
  - RESPIRATORY RATE INCREASED [None]
